FAERS Safety Report 7071662-8 (Version None)
Quarter: 2010Q4

REPORT INFORMATION
  Report Type: 
  Country: None (occurrence: None)
  Receive Date: 20101029
  Receipt Date: 20091005
  Transmission Date: 20110411
  Serious: No
  Sender: FDA-Public Use
  Company Number: A0810369A

PATIENT
  Age: 59 Year
  Sex: Female

DRUGS (4)
  1. ADVAIR DISKUS 100/50 [Suspect]
     Indication: ASTHMA
     Route: 055
     Dates: end: 20080101
  2. SINGULAIR [Concomitant]
  3. ZYRTEC [Concomitant]
  4. ALBUTEROL [Concomitant]

REACTIONS (2)
  - COUGH [None]
  - INCREASED UPPER AIRWAY SECRETION [None]
